FAERS Safety Report 4689213-1 (Version None)
Quarter: 2005Q2

REPORT INFORMATION
  Report Type: 
  Country: None (occurrence: None)
  Receive Date: 20050608
  Receipt Date: 20050201
  Transmission Date: 20051028
  Serious: No
  Sender: FDA-Public Use
  Company Number: 2005-BP-00840BP

PATIENT
  Age: 64 Year
  Sex: Female

DRUGS (13)
  1. SPIRIVA [Suspect]
     Indication: CHRONIC OBSTRUCTIVE PULMONARY DISEASE
     Dosage: 18 MCG (18 MCG, 1 PER DAY), IH
     Route: 055
     Dates: start: 20041201
  2. SPIRIVA [Suspect]
     Indication: DYSPNOEA
  3. ALBUTEROL [Concomitant]
  4. ADVAIR DISKUS 100/50 [Concomitant]
  5. VITAMIN [Concomitant]
  6. ACCUNEB [Concomitant]
  7. IBUPROFIN [Concomitant]
  8. MAGNESIUM [Concomitant]
  9. PRILOSEC [Concomitant]
  10. NORVASC [Concomitant]
  11. LASIX [Concomitant]
  12. POTASSIUM CHLORIDE [Concomitant]
  13. CALCIUM GLUCONATE [Concomitant]

REACTIONS (5)
  - DYSPNOEA [None]
  - HYPERSENSITIVITY [None]
  - NASOPHARYNGITIS [None]
  - POSTNASAL DRIP [None]
  - SNEEZING [None]
